FAERS Safety Report 9614424 (Version 1)
Quarter: 2013Q4

REPORT INFORMATION
  Report Type: Report from Study
  Country: TR (occurrence: TR)
  Receive Date: 20131011
  Receipt Date: 20131011
  Transmission Date: 20140711
  Serious: Yes (Other)
  Sender: FDA-Public Use
  Company Number: TR-ROCHE-1285592

PATIENT
  Sex: Female

DRUGS (1)
  1. BEVACIZUMAB [Suspect]
     Indication: RETINOPATHY OF PREMATURITY
     Dosage: 0.03 CC
     Route: 050

REACTIONS (4)
  - Retinal neovascularisation [Not Recovered/Not Resolved]
  - Retinal detachment [Not Recovered/Not Resolved]
  - Retinal fibrosis [Not Recovered/Not Resolved]
  - Off label use [Unknown]
